FAERS Safety Report 21209772 (Version 1)
Quarter: 2022Q3

REPORT INFORMATION
  Report Type: Spontaneous
  Country: GB (occurrence: GB)
  Receive Date: 20220813
  Receipt Date: 20220813
  Transmission Date: 20221027
  Serious: Yes (Hospitalization, Other)
  Sender: FDA-Public Use
  Company Number: None

PATIENT
  Age: 90 Year

DRUGS (13)
  1. RAMIPRIL [Suspect]
     Active Substance: RAMIPRIL
     Indication: Product used for unknown indication
     Dosage: AT NIGHT
     Route: 048
  2. AMILORIDE HYDROCHLORIDE W/FUROSEMID [Concomitant]
  3. ASPIRIN [Concomitant]
     Active Substance: ASPIRIN
     Route: 048
  4. ATORVASTATIN [Concomitant]
     Active Substance: ATORVASTATIN
     Route: 048
  5. FELODIPINE [Concomitant]
     Active Substance: FELODIPINE
  6. FUROSEMIDE [Concomitant]
     Active Substance: FUROSEMIDE
     Dosage: EACH MORNING
     Route: 048
  7. LERCANIDIPINE [Concomitant]
     Active Substance: LERCANIDIPINE
     Route: 048
  8. OMEPRAZOLE [Concomitant]
     Active Substance: OMEPRAZOLE
     Route: 048
  9. SPIRONOLACTONE [Concomitant]
     Active Substance: SPIRONOLACTONE
  10. TRIAMTERENE [Concomitant]
     Active Substance: TRIAMTERENE
  11. BUPRENORPHINE [Concomitant]
     Active Substance: BUPRENORPHINE
     Dosage: 5MCG/HOUR
     Route: 062
  12. CALCIUM\CHOLECALCIFEROL [Concomitant]
     Active Substance: CALCIUM\CHOLECALCIFEROL
     Route: 048
  13. POLYETHYLENE GLYCOLS [Concomitant]
     Active Substance: POLYETHYLENE GLYCOLS
     Dosage: SACHET

REACTIONS (2)
  - Hyponatraemia [Recovered/Resolved]
  - Confusional state [Unknown]
